FAERS Safety Report 5940105-7 (Version None)
Quarter: 2008Q4

REPORT INFORMATION
  Report Type: 
  Country: None (occurrence: None)
  Receive Date: 20081030
  Receipt Date: 20081020
  Transmission Date: 20090506
  Serious: Yes (Hospitalization)
  Sender: FDA-Public Use
  Company Number: 2008BI028084

PATIENT
  Sex: Female

DRUGS (3)
  1. TYSABRI [Suspect]
     Indication: MULTIPLE SCLEROSIS
     Dosage: IV
     Route: 042
     Dates: start: 20080103
  2. AVONEX [Concomitant]
  3. . [Concomitant]

REACTIONS (5)
  - COLECTOMY [None]
  - CRYING [None]
  - EAR PAIN [None]
  - ECONOMIC PROBLEM [None]
  - STRESS [None]
